FAERS Safety Report 9215249 (Version 4)
Quarter: 2013Q2

REPORT INFORMATION
  Report Type: Spontaneous
  Country: FR (occurrence: FR)
  Receive Date: 20130405
  Receipt Date: 20130611
  Transmission Date: 20140414
  Serious: Yes (Hospitalization)
  Sender: FDA-Public Use
  Company Number: FR-ASTRAZENECA-2013SE21001

PATIENT
  Age: 362 Month
  Sex: Male
  Weight: 65 kg

DRUGS (6)
  1. XEROQUEL [Suspect]
     Indication: SCHIZOPHRENIA, PARANOID TYPE
     Route: 048
     Dates: start: 201205, end: 2013
  2. XEROQUEL [Suspect]
     Indication: SCHIZOPHRENIA, PARANOID TYPE
     Route: 048
     Dates: start: 2013
  3. LYSANXIA [Concomitant]
     Indication: ANXIETY
     Route: 048
     Dates: start: 201209
  4. LYSANXIA [Concomitant]
     Indication: ANXIETY
     Dosage: 10 MG ONE TO THREE PER DAY
     Route: 048
  5. SEROPRAM [Concomitant]
     Route: 048
     Dates: start: 201205
  6. TERCIAN [Concomitant]

REACTIONS (5)
  - Counterfeit drug administered [Recovered/Resolved]
  - Acute psychosis [Recovering/Resolving]
  - Delirium [Recovering/Resolving]
  - Thyroid disorder [Unknown]
  - Drug ineffective [Recovering/Resolving]
